FAERS Safety Report 7896764-5 (Version None)
Quarter: 2011Q4

REPORT INFORMATION
  Report Type: 
  Country: None (occurrence: None)
  Receive Date: 20111107
  Receipt Date: 20111028
  Transmission Date: 20120403
  Serious: No
  Sender: FDA-Public Use
  Company Number: US-BIOGENIDEC-2011BI041636

PATIENT
  Age: 53 Year
  Sex: Female

DRUGS (3)
  1. TYSABRI [Suspect]
     Indication: MULTIPLE SCLEROSIS
     Route: 042
     Dates: start: 20070104, end: 20080912
  2. TYSABRI [Suspect]
     Route: 042
     Dates: start: 20100129
  3. TYSABRI [Suspect]

REACTIONS (2)
  - PAIN [None]
  - ROAD TRAFFIC ACCIDENT [None]
